FAERS Safety Report 10339866 (Version 1)
Quarter: 2014Q3

REPORT INFORMATION
  Report Type: Spontaneous
  Country: US (occurrence: None)
  Receive Date: 20140723
  Receipt Date: 20140723
  Transmission Date: 20150326
  Serious: Yes (Disabling)
  Sender: FDA-Public Use
  Company Number: None

PATIENT
  Age: 46 Year
  Sex: Female
  Weight: 52.16 kg

DRUGS (1)
  1. CIPROFLOXACIN. [Suspect]
     Active Substance: CIPROFLOXACIN
     Indication: URINARY TRACT INFECTION
     Dosage: 1 PILL  TWICE DAILY TAKEN BY MOUTH
     Route: 048
     Dates: start: 20140418, end: 20140425

REACTIONS (7)
  - Joint swelling [None]
  - Tendon disorder [None]
  - Gait disturbance [None]
  - Contusion [None]
  - Muscle tightness [None]
  - Tendon pain [None]
  - Joint range of motion decreased [None]

NARRATIVE: CASE EVENT DATE: 20140508
